FAERS Safety Report 7555245-9 (Version None)
Quarter: 2011Q2

REPORT INFORMATION
  Report Type: 
  Country: None (occurrence: None)
  Receive Date: 20110617
  Receipt Date: 20110614
  Transmission Date: 20111010
  Serious: Yes (Life-Threatening, Other)
  Sender: FDA-Public Use
  Company Number: PHHY2010CA76440

PATIENT
  Sex: Female

DRUGS (6)
  1. FLEXERIL [Concomitant]
  2. LYRICA [Concomitant]
     Dosage: 50 MG, BID
  3. PANTOLOC ^BYK GULDEN^ [Concomitant]
     Dosage: 40 MG, QID
  4. ZOLEDRONIC ACID [Suspect]
     Indication: OSTEOPOROSIS
     Dosage: 5 MG ONCE YEARLY
     Route: 042
     Dates: start: 20100113
  5. TIAZAC [Concomitant]
  6. SUPENDOL [Concomitant]
     Dosage: 2.5 MG, QID

REACTIONS (3)
  - LYMPHOMA [None]
  - BREAST CANCER [None]
  - THROMBOPHLEBITIS [None]
